FAERS Safety Report 20355529 (Version 1)
Quarter: 2022Q1

REPORT INFORMATION
  Report Type: Spontaneous
  Country: CN (occurrence: CN)
  Receive Date: 20220120
  Receipt Date: 20220120
  Transmission Date: 20220424
  Serious: Yes (Other)
  Sender: FDA-Public Use
  Company Number: CN-BAXTER-2022BAX001016

PATIENT
  Age: 7 Year
  Sex: Male
  Weight: 28.5 kg

DRUGS (3)
  1. CYCLOPHOSPHAMIDE [Suspect]
     Active Substance: CYCLOPHOSPHAMIDE
     Indication: Acute lymphocytic leukaemia
     Dosage: DELAYED INTENSIVE CAML II CHEMOTHERAPY?USAGE: 1000MG/M2/TIME
     Route: 041
     Dates: start: 20220102, end: 20220102
  2. MESNA [Suspect]
     Active Substance: MESNA
     Indication: Cystitis haemorrhagic
     Route: 065
     Dates: start: 20220102
  3. VORICONAZOLE [Suspect]
     Active Substance: VORICONAZOLE
     Indication: Pneumonia fungal
     Route: 048
     Dates: start: 20220102, end: 20220103

REACTIONS (3)
  - Delirium [Unknown]
  - Inappropriate antidiuretic hormone secretion [Recovering/Resolving]
  - Seizure [Recovering/Resolving]

NARRATIVE: CASE EVENT DATE: 20220102
